FAERS Safety Report 14326784 (Version 1)
Quarter: 2017Q4

REPORT INFORMATION
  Report Type: Spontaneous
  Country: US (occurrence: US)
  Receive Date: 20171226
  Receipt Date: 20171226
  Transmission Date: 20180321
  Serious: Yes (Disabling)
  Sender: FDA-Public Use
  Company Number: None

PATIENT
  Sex: Male
  Weight: 76.5 kg

DRUGS (2)
  1. DIPHENOXYLATE-ATROP2.5-0.025 [Suspect]
     Active Substance: ATROPINE\DIPHENOXYLATE HYDROCHLORIDE
     Indication: DIARRHOEA
     Route: 048
     Dates: start: 20170226, end: 20170301
  2. FAMOTIDINE. [Concomitant]
     Active Substance: FAMOTIDINE

REACTIONS (10)
  - Vomiting [None]
  - Product use issue [None]
  - Migraine [None]
  - Discomfort [None]
  - Malaise [None]
  - Pain [None]
  - Sepsis [None]
  - Gastrointestinal pain [None]
  - Abdominal pain lower [None]
  - Headache [None]

NARRATIVE: CASE EVENT DATE: 20170226
